FAERS Safety Report 15819402 (Version 1)
Quarter: 2019Q1

REPORT INFORMATION
  Report Type: Spontaneous
  Country: CA (occurrence: CA)
  Receive Date: 20190114
  Receipt Date: 20190114
  Transmission Date: 20190417
  Serious: Yes (Death, Hospitalization, Other)
  Sender: FDA-Public Use
  Company Number: CA-TAKEDA-2019TUS000939

PATIENT
  Age: 80 Year
  Sex: Male

DRUGS (3)
  1. COLCHICINE. [Suspect]
     Active Substance: COLCHICINE
     Indication: RENAL IMPAIRMENT
     Dosage: 0.6 MG, UNK
     Route: 065
  2. COLCHICINE. [Suspect]
     Active Substance: COLCHICINE
     Dosage: 0.6 MG, BID
     Route: 065
     Dates: start: 2016
  3. COLCHICINE. [Suspect]
     Active Substance: COLCHICINE
     Dosage: 0.6 MG, QD
     Route: 065

REACTIONS (2)
  - Cardiac arrest [Fatal]
  - Toxicity to various agents [Unknown]
